FAERS Safety Report 24102258 (Version 1)
Quarter: 2024Q3

REPORT INFORMATION
  Report Type: Spontaneous
  Country: US (occurrence: US)
  Receive Date: 20240717
  Receipt Date: 20240717
  Transmission Date: 20241017
  Serious: No
  Sender: NOVO NORDISK
  Company Number: US-NOVOPROD-1192380

PATIENT
  Age: 76 Year
  Sex: Female

DRUGS (1)
  1. OZEMPIC [Suspect]
     Active Substance: SEMAGLUTIDE
     Indication: Type 2 diabetes mellitus
     Dosage: 0.25 MG, QW
     Route: 058
     Dates: start: 20240304

REACTIONS (5)
  - Frequent bowel movements [Unknown]
  - Oesophageal disorder [Unknown]
  - Hyperhidrosis [Unknown]
  - Eructation [Unknown]
  - Dizziness [Recovered/Resolved]

NARRATIVE: CASE EVENT DATE: 20240304
